FAERS Safety Report 7126062-9 (Version None)
Quarter: 2010Q4

REPORT INFORMATION
  Report Type: 
  Country: None (occurrence: None)
  Receive Date: 20101129
  Receipt Date: 20101117
  Transmission Date: 20110411
  Serious: Yes (Hospitalization)
  Sender: FDA-Public Use
  Company Number: CG-MERCK-1011USA02262

PATIENT
  Age: 35 Year
  Sex: Female

DRUGS (1)
  1. STROMECTOL [Suspect]
     Indication: ONCHOCERCIASIS
     Route: 048
     Dates: start: 20101024, end: 20101024

REACTIONS (5)
  - ASTHENIA [None]
  - CHILLS [None]
  - DIARRHOEA [None]
  - HEADACHE [None]
  - VOMITING [None]
